FAERS Safety Report 19620048 (Version 1)
Quarter: 2021Q3

REPORT INFORMATION
  Report Type: Spontaneous
  Country: US (occurrence: US)
  Receive Date: 20210728
  Receipt Date: 20210728
  Transmission Date: 20211014
  Serious: No
  Sender: FDA-Public Use
  Company Number: US-ROCHE-2735166

PATIENT
  Sex: Female

DRUGS (5)
  1. TUKYSA [Suspect]
     Active Substance: TUCATINIB
     Indication: PRODUCT USED FOR UNKNOWN INDICATION
     Dosage: 6 TABLETS
     Route: 065
     Dates: start: 20201008
  2. TUKYSA [Suspect]
     Active Substance: TUCATINIB
     Dosage: 5 TABLETS
     Route: 065
     Dates: start: 20201104
  3. XELODA [Suspect]
     Active Substance: CAPECITABINE
     Dosage: 1 TABLET(S)
     Route: 065
  4. XELODA [Suspect]
     Active Substance: CAPECITABINE
     Indication: PRODUCT USED FOR UNKNOWN INDICATION
     Dosage: 2 TABLETS
     Route: 065
     Dates: start: 20201008
  5. TUKYSA [Suspect]
     Active Substance: TUCATINIB
     Dosage: 4 TABLETS
     Route: 065
     Dates: start: 20201117, end: 20201124

REACTIONS (12)
  - Asthenia [Unknown]
  - Skin exfoliation [Unknown]
  - Decreased appetite [Unknown]
  - Malaise [Unknown]
  - Nausea [Recovering/Resolving]
  - Pharyngeal mass [Unknown]
  - Blister [Unknown]
  - Diarrhoea [Recovering/Resolving]
  - Vomiting [Unknown]
  - Illness [Unknown]
  - Gait inability [Unknown]
  - Pain in extremity [Unknown]
